FAERS Safety Report 9868042 (Version 2)
Quarter: 2014Q1

REPORT INFORMATION
  Report Type: Report from Study
  Country: HU (occurrence: HU)
  Receive Date: 20140204
  Receipt Date: 20140204
  Transmission Date: 20141002
  Serious: Yes (Hospitalization)
  Sender: FDA-Public Use
  Company Number: HU-SANOFI-AVENTIS-2012SA024245

PATIENT
  Age: 45 Year
  Sex: Male
  Weight: 98 kg

DRUGS (7)
  1. TERIFLUNOMIDE [Suspect]
     Indication: MULTIPLE SCLEROSIS RELAPSE
     Route: 048
     Dates: start: 20110601, end: 20110917
  2. INTERFERON BETA [Suspect]
     Indication: MULTIPLE SCLEROSIS RELAPSE
     Route: 058
     Dates: start: 20040615
  3. COLESTYRAMINE [Concomitant]
     Route: 048
     Dates: start: 20110924, end: 20111004
  4. BACLOFEN [Concomitant]
     Route: 048
     Dates: start: 19920203
  5. CURAM [Concomitant]
     Route: 048
     Dates: start: 20111103, end: 20111210
  6. ACECLOFENAC [Concomitant]
     Route: 048
     Dates: start: 20111201, end: 20120105
  7. CEFUROXIME [Concomitant]
     Route: 048
     Dates: start: 20111201, end: 20111205

REACTIONS (1)
  - Testicular seminoma (pure) [Recovering/Resolving]
